FAERS Safety Report 4962908-8 (Version None)
Quarter: 2006Q2

REPORT INFORMATION
  Report Type: 
  Country: None (occurrence: None)
  Receive Date: 20060405
  Receipt Date: 20060322
  Transmission Date: 20061013
  Serious: Yes (Other)
  Sender: FDA-Public Use
  Company Number: 2006AC00580

PATIENT
  Age: 74 Year
  Sex: Female

DRUGS (6)
  1. ROPIVACAINE [Suspect]
     Indication: ANAESTHESIA
     Dosage: INJECTED SLOWLY IN DVIVIDED DOSES.
     Route: 053
  2. LIDOCAINE [Suspect]
     Indication: LOCAL ANAESTHESIA
     Dosage: INJECTED SLOWLY IN DIVIDED DOSES.
     Route: 053
  3. PROPOFOL [Suspect]
     Indication: GENERAL ANAESTHESIA
  4. SUFENTANIL CITRATE [Suspect]
     Indication: GENERAL ANAESTHESIA
  5. SEVOFLURANE [Suspect]
     Indication: GENERAL ANAESTHESIA
  6. ATRACURIUM [Suspect]
     Indication: ANAESTHESIA

REACTIONS (3)
  - DYSPNOEA [None]
  - FLAIL CHEST [None]
  - HYPERHIDROSIS [None]
